FAERS Safety Report 9572842 (Version 2)
Quarter: 2013Q4

REPORT INFORMATION
  Report Type: Spontaneous
  Country: US (occurrence: US)
  Receive Date: 20131001
  Receipt Date: 20131001
  Transmission Date: 20140711
  Serious: No
  Sender: FDA-Public Use
  Company Number: US-PURDUE-USA-2012-0081751

PATIENT
  Age: 26 Year
  Sex: Male

DRUGS (1)
  1. BUTRANS [Suspect]
     Indication: PAIN
     Dosage: 5 MCG/HR, UNK
     Route: 062
     Dates: start: 20111206, end: 20111207

REACTIONS (3)
  - Penile discharge [Recovered/Resolved]
  - Mood swings [Recovered/Resolved]
  - Unevaluable event [Unknown]
